FAERS Safety Report 8471707-4 (Version None)
Quarter: 2012Q2

REPORT INFORMATION
  Report Type: 
  Country: None (occurrence: None)
  Receive Date: 20120627
  Receipt Date: 20120616
  Transmission Date: 20120825
  Serious: Yes (Death)
  Sender: FDA-Public Use
  Company Number: FR-GLAXOSMITHKLINE-B0778032A

PATIENT
  Sex: Female
  Weight: 56 kg

DRUGS (21)
  1. XANAX [Concomitant]
  2. ACETAMINOPHEN [Concomitant]
     Dosage: 1TAB FOUR TIMES PER DAY
     Route: 048
  3. CALCIUM CARBONATE [Concomitant]
  4. BONIVA [Concomitant]
  5. PAROXETINE [Concomitant]
  6. ACAMPROSATE CALCIUM [Concomitant]
  7. CEFAZOLIN [Concomitant]
     Indication: ANTIBIOTIC PROPHYLAXIS
     Dosage: 2UNIT PER DAY
     Dates: start: 20110101
  8. DRESSING [Concomitant]
  9. ARIXTRA [Suspect]
     Indication: ATRIAL FIBRILLATION
     Dosage: 7.5MG PER DAY
     Route: 058
     Dates: start: 20110117, end: 20110127
  10. LEVOTHYROXINE SODIUM [Concomitant]
     Dosage: 1TAB IN THE MORNING
     Route: 048
     Dates: start: 20110101
  11. LASIX [Concomitant]
  12. BISEPTINE [Concomitant]
  13. PENTOXIFYLLINE [Concomitant]
     Indication: ATRIAL FIBRILLATION
     Dates: start: 20050301
  14. PROPRANOLOL [Concomitant]
  15. DIGOXIN [Concomitant]
  16. LOVENOX [Concomitant]
     Dosage: .5ML TWICE PER DAY
     Route: 058
     Dates: start: 20110108, end: 20110110
  17. ZOLPIDEM [Concomitant]
  18. COMPRESSES [Concomitant]
  19. PREDNISOLONE [Suspect]
     Indication: COUGH
     Dosage: 3TAB IN THE MORNING
     Route: 048
     Dates: start: 20110118, end: 20110122
  20. VASTAREL [Concomitant]
  21. ARIMIDEX [Concomitant]

REACTIONS (18)
  - CARDIAC ARREST [None]
  - GENERAL PHYSICAL HEALTH DETERIORATION [None]
  - BLOOD PRESSURE IMMEASURABLE [None]
  - OFF LABEL USE [None]
  - LARYNGEAL OEDEMA [None]
  - MYDRIASIS [None]
  - PALLOR [None]
  - GASTROINTESTINAL HAEMORRHAGE [None]
  - HAEMATEMESIS [None]
  - DISSEMINATED INTRAVASCULAR COAGULATION [None]
  - BRADYCARDIA [None]
  - HAEMODYNAMIC INSTABILITY [None]
  - CARDIO-RESPIRATORY ARREST [None]
  - CYANOSIS [None]
  - LACTIC ACIDOSIS [None]
  - ARRHYTHMIA [None]
  - PIGMENTATION DISORDER [None]
  - HEPATOCELLULAR INJURY [None]
